FAERS Safety Report 12070963 (Version 7)
Quarter: 2016Q2

REPORT INFORMATION
  Report Type: Spontaneous
  Country: JP (occurrence: JP)
  Receive Date: 20160211
  Receipt Date: 20160411
  Transmission Date: 20160815
  Serious: Yes (Life-Threatening, Hospitalization, Other)
  Sender: FDA-Public Use
  Company Number: JP-B.I. PHARMACEUTICALS,INC./RIDGEFIELD-2016-BI-07530NB

PATIENT
  Age: 69 Year
  Sex: Female
  Weight: 42.1 kg

DRUGS (6)
  1. MYSLEE [Suspect]
     Active Substance: ZOLPIDEM TARTRATE
     Indication: INSOMNIA
     Dosage: 10 MG
     Route: 048
     Dates: end: 20160205
  2. REMINYL [Concomitant]
     Active Substance: GALANTAMINE
     Indication: DEMENTIA
     Dosage: 16 MG
     Route: 048
     Dates: end: 20160205
  3. MYSLEE [Suspect]
     Active Substance: ZOLPIDEM TARTRATE
     Indication: SUICIDE ATTEMPT
     Dosage: 260 MG
     Route: 048
     Dates: start: 20160204, end: 20160204
  4. MICAMLO COMBINATION [Suspect]
     Active Substance: AMLODIPINE BESYLATE\TELMISARTAN
     Indication: ESSENTIAL HYPERTENSION
     Dosage: 1 ANZ
     Route: 048
     Dates: start: 20110914, end: 20160205
  5. MICAMLO COMBINATION [Suspect]
     Active Substance: AMLODIPINE BESYLATE\TELMISARTAN
     Dosage: 28 ANZ
     Route: 048
     Dates: start: 20160204, end: 20160204
  6. LIPIDIL [Concomitant]
     Active Substance: FENOFIBRATE
     Indication: DYSLIPIDAEMIA
     Dosage: 80 MG
     Route: 048
     Dates: end: 20160205

REACTIONS (11)
  - Hypotension [Recovered/Resolved]
  - Hypothermia [Recovered/Resolved]
  - Shock [Recovered/Resolved]
  - Defect conduction intraventricular [Recovered/Resolved]
  - Depression [Unknown]
  - C-reactive protein increased [Unknown]
  - Altered state of consciousness [Recovered/Resolved]
  - Atrial fibrillation [Recovered/Resolved]
  - Overdose [Unknown]
  - Conduction disorder [Recovered/Resolved]
  - Suicide attempt [Unknown]

NARRATIVE: CASE EVENT DATE: 20160204
